FAERS Safety Report 20677548 (Version 1)
Quarter: 2022Q2

REPORT INFORMATION
  Report Type: Spontaneous
  Country: US (occurrence: US)
  Receive Date: 20220406
  Receipt Date: 20220406
  Transmission Date: 20220720
  Serious: No
  Sender: FDA-Public Use
  Company Number: US-JNJFOC-20220356850

PATIENT
  Age: 21 Month
  Sex: Male
  Weight: 15 kg

DRUGS (12)
  1. TRACLEER [Suspect]
     Active Substance: BOSENTAN
     Indication: Pulmonary arterial hypertension
     Route: 048
     Dates: start: 20211013, end: 20211022
  2. TRACLEER [Suspect]
     Active Substance: BOSENTAN
     Route: 048
     Dates: start: 202111, end: 2021
  3. TRACLEER [Suspect]
     Active Substance: BOSENTAN
     Route: 048
     Dates: start: 20220121
  4. REMODULIN [Suspect]
     Active Substance: TREPROSTINIL
     Indication: Pulmonary arterial hypertension
     Route: 058
     Dates: start: 20210906
  5. REMODULIN [Suspect]
     Active Substance: TREPROSTINIL
     Route: 058
  6. CETIRIZINE [Concomitant]
     Active Substance: CETIRIZINE HYDROCHLORIDE
  7. HYDROCORTISONE [Concomitant]
     Active Substance: HYDROCORTISONE
  8. LACTOBACILLUS [LACTOBACILLUS ACIDOPHILUS] [Concomitant]
  9. PLANTAGO AFRA SEED [Concomitant]
     Active Substance: PLANTAGO AFRA SEED
  10. CHOLECALCIFEROL [Concomitant]
     Active Substance: CHOLECALCIFEROL
  11. SILDENAFIL CITRATE [Concomitant]
     Active Substance: SILDENAFIL CITRATE
     Dosage: 10 MG/ML
     Dates: start: 20210906
  12. TREPROSTINIL [Concomitant]
     Active Substance: TREPROSTINIL

REACTIONS (9)
  - Blood pressure decreased [Unknown]
  - Viral infection [Recovered/Resolved]
  - Infusion site haemorrhage [Recovered/Resolved]
  - Infusion site irritation [Not Recovered/Not Resolved]
  - Infusion site pain [Recovering/Resolving]
  - Eczema [Unknown]
  - Nasal congestion [Unknown]
  - Off label use [Unknown]
  - Product use issue [Unknown]

NARRATIVE: CASE EVENT DATE: 20210101
